FAERS Safety Report 5079137-2 (Version None)
Quarter: 2006Q3

REPORT INFORMATION
  Report Type: 
  Country: None (occurrence: None)
  Receive Date: 20060814
  Receipt Date: 20060807
  Transmission Date: 20061208
  Serious: Yes (Hospitalization)
  Sender: FDA-Public Use
  Company Number: FR-AVENTIS-200612779FR

PATIENT
  Age: 36 Year
  Sex: Male
  Weight: 75 kg

DRUGS (7)
  1. TAVANIC [Suspect]
     Route: 048
     Dates: start: 20060412, end: 20060417
  2. KETEK [Suspect]
     Route: 048
     Dates: start: 20060329, end: 20060404
  3. AUGMENTIN [Suspect]
     Indication: PYREXIA
     Route: 048
     Dates: start: 20060321, end: 20060330
  4. DOLIPRANE [Concomitant]
     Indication: PYREXIA
     Route: 048
     Dates: start: 20060321, end: 20060324
  5. NORTUSSINE [Concomitant]
     Indication: COUGH
     Dosage: DOSE UNIT: TABLESPOON
     Route: 048
     Dates: start: 20060321
  6. MEDROL [Concomitant]
     Route: 048
     Dates: start: 20060329
  7. NEXIUM [Concomitant]
     Route: 048
     Dates: start: 20060329

REACTIONS (4)
  - ALANINE AMINOTRANSFERASE INCREASED [None]
  - ASPARTATE AMINOTRANSFERASE INCREASED [None]
  - BLOOD ALKALINE PHOSPHATASE INCREASED [None]
  - GAMMA-GLUTAMYLTRANSFERASE INCREASED [None]
